FAERS Safety Report 8300446-5 (Version None)
Quarter: 2012Q2

REPORT INFORMATION
  Report Type: 
  Country: None (occurrence: None)
  Receive Date: 20120420
  Receipt Date: 20120406
  Transmission Date: 20120825
  Serious: Yes (Other)
  Sender: FDA-Public Use
  Company Number: IT-MYLANLABS-2012S1007471

PATIENT
  Age: 43 Year
  Sex: Female

DRUGS (3)
  1. LIMPIDEX [Concomitant]
     Indication: PRODUCT USED FOR UNKNOWN INDICATION
  2. EZETIMIBE [Concomitant]
     Indication: PRODUCT USED FOR UNKNOWN INDICATION
  3. METFORMIN HCL [Suspect]
     Indication: DIABETES MELLITUS
     Route: 048
     Dates: start: 20120331, end: 20120401

REACTIONS (2)
  - DIARRHOEA [None]
  - HYPERTENSIVE CRISIS [None]
